FAERS Safety Report 25892383 (Version 3)
Quarter: 2025Q4

REPORT INFORMATION
  Report Type: Report from Study
  Country: US (occurrence: US)
  Receive Date: 20251007
  Receipt Date: 20251230
  Transmission Date: 20260118
  Serious: Yes (Hospitalization)
  Sender: ABBVIE
  Company Number: US-ABBVIE-6487752

PATIENT
  Age: 79 Year
  Sex: Male

DRUGS (16)
  1. SKYRIZI [Suspect]
     Active Substance: RISANKIZUMAB-RZAA
     Indication: Psoriasis
     Dosage: SOLUTION FOR INJECTION IN PRE-FILLED PEN
     Route: 058
     Dates: start: 202001
  2. SKYRIZI [Suspect]
     Active Substance: RISANKIZUMAB-RZAA
     Route: 058
  3. METOPROLOL SUCCINATE [Concomitant]
     Active Substance: METOPROLOL SUCCINATE
     Indication: Blood pressure measurement
     Dosage: EXTENDED-RELEASE (ER)
  4. JARDIANCE [Concomitant]
     Active Substance: EMPAGLIFLOZIN
     Indication: Blood glucose
  5. IPRATROPIUM [Concomitant]
     Active Substance: IPRATROPIUM
     Indication: Product used for unknown indication
  6. EZETIMIBE [Concomitant]
     Active Substance: EZETIMIBE
     Indication: Blood cholesterol
  7. ALBUTEROL [Concomitant]
     Active Substance: ALBUTEROL
     Indication: Nasopharyngitis
     Dosage: TIME INTERVAL: AS NECESSARY
  8. ASPIRIN [Concomitant]
     Active Substance: ASPIRIN
     Indication: Product used for unknown indication
  9. OZEMPIC [Suspect]
     Active Substance: SEMAGLUTIDE
     Indication: Blood glucose abnormal
     Dosage: SOLUTION FOR INJECTION IN PRE-FILLED PEN
     Route: 058
     Dates: start: 20241123, end: 20241222
  10. OZEMPIC [Suspect]
     Active Substance: SEMAGLUTIDE
     Indication: Blood glucose abnormal
     Dosage: SOLUTION FOR INJECTION IN PRE-FILLED PEN
     Route: 058
     Dates: start: 20241222, end: 20250726
  11. LIPITOR [Concomitant]
     Active Substance: ATORVASTATIN CALCIUM
     Indication: Blood cholesterol
  12. LOSARTAN [Concomitant]
     Active Substance: LOSARTAN
     Indication: Blood pressure measurement
  13. ALFUZOSIN HYDROCHLORIDE [Concomitant]
     Active Substance: ALFUZOSIN HYDROCHLORIDE
     Indication: Prostatic disorder
  14. GLIPIZIDE XL [Concomitant]
     Active Substance: GLIPIZIDE
     Indication: Blood glucose
  15. FLUTICASONE [Concomitant]
     Active Substance: FLUTICASONE
     Indication: Product used for unknown indication
  16. NORVASC [Concomitant]
     Active Substance: AMLODIPINE BESYLATE
     Indication: Blood pressure measurement

REACTIONS (13)
  - Myocardial infarction [Recovering/Resolving]
  - Cardiac arrest [Recovering/Resolving]
  - Asthenia [Recovered/Resolved]
  - Poor quality sleep [Recovering/Resolving]
  - Heart rate decreased [Recovering/Resolving]
  - Asthenia [Recovered/Resolved]
  - Vomiting [Recovered/Resolved]
  - Renal function test abnormal [Recovered/Resolved]
  - Gait disturbance [Recovered/Resolved]
  - Muscle atrophy [Recovered/Resolved]
  - Dizziness [Recovered/Resolved]
  - Insomnia [Recovered/Resolved]
  - Investigation abnormal [Recovering/Resolving]

NARRATIVE: CASE EVENT DATE: 20250101
